FAERS Safety Report 25624569 (Version 1)
Quarter: 2025Q3

REPORT INFORMATION
  Report Type: Spontaneous
  Country: US (occurrence: US)
  Receive Date: 20250730
  Receipt Date: 20250730
  Transmission Date: 20251021
  Serious: Yes (Hospitalization, Other)
  Sender: BRISTOL-MYERS SQUIBB COMPANY
  Company Number: US-BRISTOL-MYERS SQUIBB COMPANY-2025-104589

PATIENT
  Age: 54 Year
  Sex: Female
  Weight: 81.9 kg

DRUGS (2)
  1. REVLIMID [Suspect]
     Active Substance: LENALIDOMIDE
     Indication: Plasma cell myeloma
     Route: 048
     Dates: start: 20221007, end: 20250628
  2. BELANTAMAB [Concomitant]
     Active Substance: BELANTAMAB
     Indication: Product used for unknown indication
     Route: 058
     Dates: end: 20250613

REACTIONS (2)
  - Gastroenteritis salmonella [Unknown]
  - Gastroenteritis Escherichia coli [Unknown]

NARRATIVE: CASE EVENT DATE: 20250621
